FAERS Safety Report 6968210-7 (Version None)
Quarter: 2010Q3

REPORT INFORMATION
  Report Type: 
  Country: None (occurrence: None)
  Receive Date: 20100907
  Receipt Date: 20100831
  Transmission Date: 20110219
  Serious: Yes (Other)
  Sender: FDA-Public Use
  Company Number: US-ROCHE-686339

PATIENT
  Sex: Female
  Weight: 55.3 kg

DRUGS (5)
  1. ACCUTANE [Suspect]
     Route: 048
     Dates: start: 20010501, end: 20010612
  2. ACCUTANE [Suspect]
     Dosage: FREQUENCY:QD
     Route: 048
     Dates: start: 20050201
  3. CLARAVIS [Suspect]
     Route: 065
     Dates: start: 20050201, end: 20050501
  4. AMNESTEEM [Suspect]
     Route: 065
     Dates: start: 20050601, end: 20050701
  5. MINOCIN [Concomitant]

REACTIONS (14)
  - DEPRESSION [None]
  - DIVERTICULITIS [None]
  - DRY SKIN [None]
  - FOLLICULITIS [None]
  - HEADACHE [None]
  - INFLAMMATORY BOWEL DISEASE [None]
  - LIP DRY [None]
  - NECK MASS [None]
  - ORAL HERPES [None]
  - PHARYNGITIS [None]
  - PROCTITIS [None]
  - PROCTITIS ULCERATIVE [None]
  - TONSILLITIS [None]
  - VISION BLURRED [None]
